FAERS Safety Report 17559452 (Version 5)
Quarter: 2021Q1

REPORT INFORMATION
  Report Type: Report from Study
  Country: IT (occurrence: IT)
  Receive Date: 20200319
  Receipt Date: 20210108
  Transmission Date: 20210419
  Serious: Yes (Life-Threatening, Hospitalization, Other)
  Sender: FDA-Public Use
  Company Number: IT-GLAXOSMITHKLINE-IT2020GSK044715

PATIENT
  Age: 63 Year
  Sex: Female
  Weight: 64 kg

DRUGS (10)
  1. GEMCITABINE (NON?GSK COMPARATOR) [Suspect]
     Active Substance: GEMCITABINE
     Indication: OVARIAN CANCER
     Dosage: 800 MG/M2, 1376 MG, D1?D8 Q21
     Route: 042
     Dates: start: 20190829, end: 20191231
  2. CARBOPLATIN (NON?GSK COMPARATOR) [Suspect]
     Active Substance: CARBOPLATIN
     Indication: OVARIAN CANCER
     Dosage: 387 MG, AUC 4, D1 Q21
     Route: 042
     Dates: start: 20190829, end: 20191231
  3. IGROTON [Concomitant]
     Active Substance: CHLORTHALIDONE
     Indication: HYPERTENSION
     Dosage: 25 MG
     Route: 048
     Dates: start: 20181115
  4. SEQUACOR [Concomitant]
     Active Substance: BISOPROLOL
     Indication: TACHYCARDIA
     Dosage: 125 MG, BID
     Route: 048
     Dates: start: 20180515
  5. XARELTO [Concomitant]
     Active Substance: RIVAROXABAN
     Indication: THROMBOSIS
     Dosage: 10 MG
     Route: 048
     Dates: start: 201811
  6. NIRAPARIB [Suspect]
     Active Substance: NIRAPARIB
     Indication: OVARIAN CANCER
     Dosage: 200 MG, QD
     Route: 048
     Dates: start: 20200214, end: 20200302
  7. NIRAPARIB [Suspect]
     Active Substance: NIRAPARIB
     Dosage: UNK
     Route: 048
     Dates: end: 20200303
  8. BLOPRESS [Concomitant]
     Active Substance: CANDESARTAN CILEXETIL
     Indication: HYPERTENSION
     Dosage: 32 MG
     Route: 048
     Dates: start: 20181115
  9. CLARITHROMYCIN. [Concomitant]
     Active Substance: CLARITHROMYCIN
     Dosage: 500 MG, BID
     Dates: start: 20200309, end: 20200315
  10. FILGRASTIM [Concomitant]
     Active Substance: FILGRASTIM
     Dosage: 30 MG, BID, 1FL
     Dates: start: 20200309, end: 20200311

REACTIONS (2)
  - Thrombocytopenia [Recovered/Resolved]
  - Neutrophil count decreased [Recovered/Resolved]

NARRATIVE: CASE EVENT DATE: 20200303
